FAERS Safety Report 4423520-2 (Version None)
Quarter: 2004Q3

REPORT INFORMATION
  Report Type: 
  Country: None (occurrence: None)
  Receive Date: 20040805
  Receipt Date: 20040705
  Transmission Date: 20050211
  Serious: No
  Sender: FDA-Public Use
  Company Number: 200410604BVD

PATIENT
  Age: 42 Year
  Sex: Female
  Weight: 121 kg

DRUGS (2)
  1. AVELOX [Suspect]
     Indication: INFLUENZA
     Dosage: 400 MG, TOTAL DAILY, ORAL
     Route: 048
     Dates: start: 20040601, end: 20040604
  2. CONTAC ERKAETUNGS-TRUNK FORTE [Concomitant]

REACTIONS (8)
  - ABASIA [None]
  - ECZEMA [None]
  - NAUSEA [None]
  - OEDEMA PERIPHERAL [None]
  - PARAESTHESIA [None]
  - PRURITUS [None]
  - VERTIGO [None]
  - VOMITING [None]
